FAERS Safety Report 20292284 (Version 2)
Quarter: 2022Q2

REPORT INFORMATION
  Report Type: Spontaneous
  Country: US (occurrence: US)
  Receive Date: 20220104
  Receipt Date: 20220511
  Transmission Date: 20220721
  Serious: Yes (Hospitalization, Other)
  Sender: FDA-Public Use
  Company Number: US-PFIZER INC-202101863497

PATIENT
  Age: 65 Year
  Sex: Female
  Weight: 59.864 kg

DRUGS (1)
  1. CHANTIX [Suspect]
     Active Substance: VARENICLINE TARTRATE
     Indication: Smoking cessation therapy
     Dosage: 0.5 MG, 1X/DAY
     Dates: start: 20200105, end: 20200106

REACTIONS (14)
  - Dehydration [Unknown]
  - Hyperhidrosis [Unknown]
  - Dizziness [Unknown]
  - Loss of consciousness [Recovered/Resolved]
  - Facial bones fracture [Unknown]
  - Eye contusion [Unknown]
  - Diarrhoea haemorrhagic [Unknown]
  - Abdominal pain [Unknown]
  - Nausea [Unknown]
  - Vomiting [Unknown]
  - Contusion [Unknown]
  - Restlessness [Unknown]
  - Sleep disorder [Unknown]
  - Pain [Unknown]

NARRATIVE: CASE EVENT DATE: 20200101
